FAERS Safety Report 21409464 (Version 6)
Quarter: 2022Q4

REPORT INFORMATION
  Report Type: Report from Study
  Country: US (occurrence: US)
  Receive Date: 20221004
  Receipt Date: 20221110
  Transmission Date: 20230113
  Serious: Yes (Other)
  Sender: FDA-Public Use
  Company Number: US-GILEAD-2022-0600214

PATIENT
  Age: 62 Year
  Sex: Male

DRUGS (3)
  1. COBICISTAT\ELVITEGRAVIR\EMTRICITABINE\TENOFOVIR [Suspect]
     Active Substance: COBICISTAT\ELVITEGRAVIR\EMTRICITABINE\TENOFOVIR
     Indication: Product used for unknown indication
     Route: 065
  2. CABOMETYX [Suspect]
     Active Substance: CABOZANTINIB S-MALATE
     Indication: Renal cancer
     Dosage: 40 MG, QD
     Route: 048
     Dates: start: 20220805
  3. CABOMETYX [Suspect]
     Active Substance: CABOZANTINIB S-MALATE
     Dosage: 40 MG, QD
     Route: 048

REACTIONS (19)
  - Rectal haemorrhage [Recovered/Resolved]
  - Penile pain [Unknown]
  - Penile oedema [Unknown]
  - Anorectal swelling [Recovered/Resolved]
  - Anorectal discomfort [Recovered/Resolved]
  - Erythema [Unknown]
  - Glossitis [Recovered/Resolved]
  - Skin exfoliation [Unknown]
  - Proctalgia [Not Recovered/Not Resolved]
  - Vomiting [Unknown]
  - Drug interaction [Unknown]
  - Proctalgia [Not Recovered/Not Resolved]
  - Insomnia [Unknown]
  - Weight decreased [Unknown]
  - Blood pressure increased [Not Recovered/Not Resolved]
  - Pain in extremity [Not Recovered/Not Resolved]
  - Rash [Unknown]
  - Diarrhoea [Unknown]
  - Stomatitis [Not Recovered/Not Resolved]

NARRATIVE: CASE EVENT DATE: 20220801
